FAERS Safety Report 23605611 (Version 2)
Quarter: 2024Q2

REPORT INFORMATION
  Report Type: Spontaneous
  Country: US (occurrence: US)
  Receive Date: 20240307
  Receipt Date: 20240605
  Transmission Date: 20240716
  Serious: No
  Sender: FDA-Public Use
  Company Number: US-REGENERON PHARMACEUTICALS, INC.-2024-017007

PATIENT
  Sex: Female

DRUGS (2)
  1. EYLEA HD [Suspect]
     Active Substance: AFLIBERCEPT
     Indication: Retinal vein occlusion
     Dosage: UNK, MONTHLY (4-5 WEEKS) INTO LEFT EYE, FORMULATION: EYLEA HD VIAL
     Dates: start: 20231212, end: 20231212
  2. EYLEA HD [Suspect]
     Active Substance: AFLIBERCEPT
     Indication: Cystoid macular oedema

REACTIONS (2)
  - Off label use [Recovered/Resolved]
  - Drug effective for unapproved indication [Recovered/Resolved]

NARRATIVE: CASE EVENT DATE: 20231201
